FAERS Safety Report 12343144 (Version 1)
Quarter: 2016Q2

REPORT INFORMATION
  Report Type: Spontaneous
  Country: PL (occurrence: PL)
  Receive Date: 20160506
  Receipt Date: 20160506
  Transmission Date: 20160815
  Serious: Yes (Death)
  Sender: FDA-Public Use
  Company Number: PL-MALLINCKRODT-T201601564

PATIENT
  Age: 73 Year
  Sex: Female
  Weight: 90 kg

DRUGS (1)
  1. OPTIRAY 350 [Suspect]
     Active Substance: IOVERSOL
     Indication: COMPUTERISED TOMOGRAM THORAX
     Dosage: 120 ML, SINGLE
     Route: 042
     Dates: start: 20160425, end: 20160425

REACTIONS (3)
  - Cardiac arrest [Fatal]
  - Loss of consciousness [Fatal]
  - Dyspnoea [Fatal]

NARRATIVE: CASE EVENT DATE: 20160425
